FAERS Safety Report 8409371-2 (Version None)
Quarter: 2012Q2

REPORT INFORMATION
  Report Type: 
  Country: None (occurrence: None)
  Receive Date: 20120605
  Receipt Date: 20120529
  Transmission Date: 20120825
  Serious: No
  Sender: FDA-Public Use
  Company Number: US-BIOGENIDEC-2012BI018996

PATIENT
  Sex: Male

DRUGS (3)
  1. AVONEX [Concomitant]
     Indication: MULTIPLE SCLEROSIS
  2. EYE DROPS (NOS) [Concomitant]
     Indication: OCULAR HYPERAEMIA
  3. TYSABRI [Suspect]
     Indication: MULTIPLE SCLEROSIS
     Route: 042
     Dates: start: 20101222

REACTIONS (7)
  - APHASIA [None]
  - ARTHRALGIA [None]
  - HEADACHE [None]
  - CHROMATURIA [None]
  - DIPLOPIA [None]
  - INSOMNIA [None]
  - FATIGUE [None]
